FAERS Safety Report 8119153-7 (Version None)
Quarter: 2012Q1

REPORT INFORMATION
  Report Type: 
  Country: None (occurrence: None)
  Receive Date: 20120207
  Receipt Date: 20120207
  Transmission Date: 20120608
  Serious: Yes (Disabling, Other)
  Sender: FDA-Public Use
  Company Number: None

PATIENT
  Age: 49 Year
  Sex: Female
  Weight: 51.709 kg

DRUGS (3)
  1. MICONAZOLE 3 [Suspect]
     Indication: CANDIDIASIS
     Dosage: 1 APPLICATOR
     Route: 067
     Dates: start: 20120202, end: 20120202
  2. MICONAZOLE 3 [Suspect]
     Indication: FUNGAL INFECTION
     Dosage: 1 APPLICATOR
     Route: 067
     Dates: start: 20120202, end: 20120202
  3. MICONAZOLE [Concomitant]
     Dosage: SMALL AMOUNT ON FINGER
     Route: 067

REACTIONS (4)
  - APPLICATION SITE PRURITUS [None]
  - APPLICATION SITE PAIN [None]
  - VULVOVAGINAL SWELLING [None]
  - VULVOVAGINAL ERYTHEMA [None]
